FAERS Safety Report 12228219 (Version 2)
Quarter: 2016Q3

REPORT INFORMATION
  Report Type: Spontaneous
  Country: US (occurrence: US)
  Receive Date: 20160401
  Receipt Date: 20160705
  Transmission Date: 20161109
  Serious: No
  Sender: FDA-Public Use
  Company Number: US-AUROBINDO-AUR-APU-2016-00117

PATIENT
  Age: 89 Year
  Sex: Female

DRUGS (4)
  1. VITAMIN D                          /00107901/ [Concomitant]
     Active Substance: ERGOCALCIFEROL
     Indication: PRODUCT USED FOR UNKNOWN INDICATION
     Route: 065
  2. LIPITOR [Concomitant]
     Active Substance: ATORVASTATIN CALCIUM
     Indication: PRODUCT USED FOR UNKNOWN INDICATION
     Route: 065
  3. DULOXETINE DELAYED-RELEASE CAPSULES USP 20 MG [Suspect]
     Active Substance: DULOXETINE
     Indication: PRURITUS
     Dosage: TWO WEEKS AGO, ONCE A DAY
     Route: 065
     Dates: start: 20151020, end: 20151021
  4. DULOXETINE DELAYED-RELEASE CAPSULES USP 20 MG [Suspect]
     Active Substance: DULOXETINE
     Indication: RASH

REACTIONS (8)
  - Diarrhoea [Recovered/Resolved]
  - Nausea [Recovered/Resolved]
  - Chest pain [Unknown]
  - Eye irritation [Unknown]
  - Headache [Recovered/Resolved]
  - Eye pruritus [Unknown]
  - Off label use [Recovered/Resolved]
  - Dizziness [Recovered/Resolved]

NARRATIVE: CASE EVENT DATE: 20151020
